FAERS Safety Report 12211488 (Version 1)
Quarter: 2016Q1

REPORT INFORMATION
  Report Type: Spontaneous
  Country: US (occurrence: US)
  Receive Date: 20160325
  Receipt Date: 20160325
  Transmission Date: 20160526
  Serious: No
  Sender: FDA-Public Use
  Company Number: US-KERYX BIOPHARMACEUTICALS, INC.-2016US001533

PATIENT
  Sex: Female

DRUGS (14)
  1. VENOFER [Concomitant]
     Active Substance: IRON SUCROSE
     Dosage: 50 MG, QWK, MONTH 1
     Route: 042
  2. MIRCERA [Concomitant]
     Active Substance: METHOXY POLYETHYLENE GLYCOL-EPOETIN BETA
     Dosage: 100 MICROGRAMS, QWK, MONTH 1
  3. VENOFER [Concomitant]
     Active Substance: IRON SUCROSE
     Dosage: 100 MG, QWK, 1 MONTH BEFORE AURYXIA
     Route: 042
  4. VENOFER [Concomitant]
     Active Substance: IRON SUCROSE
     Dosage: 50 MG, QWK, MONTH 3
     Route: 042
  5. MIRCERA [Concomitant]
     Active Substance: METHOXY POLYETHYLENE GLYCOL-EPOETIN BETA
     Indication: PRODUCT USED FOR UNKNOWN INDICATION
     Dosage: 150 MICROGRAMS, QWK, 3 MONTHS BEFORE AURYXIA
  6. MIRCERA [Concomitant]
     Active Substance: METHOXY POLYETHYLENE GLYCOL-EPOETIN BETA
     Dosage: 100 MICROGRAMS, QWK, 2 MONTHS BEFORE AURYXIA
  7. MIRCERA [Concomitant]
     Active Substance: METHOXY POLYETHYLENE GLYCOL-EPOETIN BETA
     Dosage: 225 MICROGRAMS, QWK, MONTH 3
  8. VENOFER [Concomitant]
     Active Substance: IRON SUCROSE
     Indication: PRODUCT USED FOR UNKNOWN INDICATION
     Dosage: 100 MG, QWK, 3 MONTHS BEFORE AURYXIA
     Route: 042
  9. VENOFER [Concomitant]
     Active Substance: IRON SUCROSE
     Dosage: 100 MG, QWK, 2 MONTHS BEFORE AURYXIA
     Route: 042
  10. VENOFER [Concomitant]
     Active Substance: IRON SUCROSE
     Dosage: 50 MG, QWK, START OF AURYXIA
     Route: 042
  11. AURYXIA [Suspect]
     Active Substance: TETRAFERRIC TRICITRATE DECAHYDRATE
     Indication: BLOOD PHOSPHORUS INCREASED
     Dosage: 6 TAB, QD
     Dates: start: 201510
  12. MIRCERA [Concomitant]
     Active Substance: METHOXY POLYETHYLENE GLYCOL-EPOETIN BETA
     Dosage: 50 MICROGRAMS, QWK, START OF AURYXIA
  13. VENOFER [Concomitant]
     Active Substance: IRON SUCROSE
     Dosage: 50 MG, QWK, MONTH 2
     Route: 042
  14. MIRCERA [Concomitant]
     Active Substance: METHOXY POLYETHYLENE GLYCOL-EPOETIN BETA
     Dosage: 225 MICROGRAMS, QWK, MONTH 2
     Route: 065

REACTIONS (1)
  - Faeces discoloured [Not Recovered/Not Resolved]
